FAERS Safety Report 22527730 (Version 9)
Quarter: 2023Q4

REPORT INFORMATION
  Report Type: Report from Study
  Country: US (occurrence: US)
  Receive Date: 20230606
  Receipt Date: 20231220
  Transmission Date: 20240110
  Serious: No
  Sender: FDA-Public Use
  Company Number: US-002147023-NVSC2023US127580

PATIENT
  Age: 44 Year
  Sex: Female

DRUGS (2)
  1. KESIMPTA [Suspect]
     Active Substance: OFATUMUMAB
     Indication: Relapsing multiple sclerosis
     Dosage: 20 MG, QMO
     Route: 058
     Dates: start: 20230519
  2. KESIMPTA [Suspect]
     Active Substance: OFATUMUMAB
     Indication: Multiple sclerosis

REACTIONS (11)
  - Photosensitivity reaction [Unknown]
  - Sunburn [Unknown]
  - COVID-19 [Unknown]
  - Disturbance in attention [Unknown]
  - Fatigue [Unknown]
  - Urinary tract infection [Unknown]
  - Headache [Unknown]
  - Memory impairment [Unknown]
  - Influenza like illness [Unknown]
  - Lethargy [Unknown]
  - Sinusitis [Unknown]

NARRATIVE: CASE EVENT DATE: 20230519
